FAERS Safety Report 10555954 (Version 1)
Quarter: 2014Q4

REPORT INFORMATION
  Report Type: Spontaneous
  Country: US (occurrence: US)
  Receive Date: 20141030
  Receipt Date: 20141030
  Transmission Date: 20150529
  Serious: No
  Sender: FDA-Public Use
  Company Number: US-AMGEN-USASP2014082466

PATIENT
  Age: 35 Year
  Sex: Female

DRUGS (1)
  1. ENBREL [Suspect]
     Active Substance: ETANERCEPT
     Indication: RHEUMATOID ARTHRITIS
     Dosage: 50 MG, QWK
     Route: 065
     Dates: start: 20140921, end: 20141012

REACTIONS (9)
  - Injection site erythema [Not Recovered/Not Resolved]
  - Pyrexia [Not Recovered/Not Resolved]
  - Injection site induration [Not Recovered/Not Resolved]
  - Insomnia [Not Recovered/Not Resolved]
  - Injection site warmth [Not Recovered/Not Resolved]
  - Injection site swelling [Not Recovered/Not Resolved]
  - Anxiety [Not Recovered/Not Resolved]
  - Arthralgia [Not Recovered/Not Resolved]
  - Injection site vesicles [Not Recovered/Not Resolved]

NARRATIVE: CASE EVENT DATE: 201409
